FAERS Safety Report 5925242-5 (Version None)
Quarter: 2008Q4

REPORT INFORMATION
  Report Type: 
  Country: None (occurrence: None)
  Receive Date: 20081020
  Receipt Date: 20081020
  Transmission Date: 20090506
  Serious: No
  Sender: FDA-Public Use
  Company Number: None

PATIENT
  Sex: Female
  Weight: 74.8435 kg

DRUGS (2)
  1. COSOPT [Suspect]
     Indication: GLAUCOMA
     Dosage: 1 DROP TWICE A DAY INTRACORNEAL
     Route: 021
     Dates: start: 20080816, end: 20080820
  2. COSOPT [Suspect]
     Indication: GLAUCOMA
     Dosage: 1 DROP TWICE A DAY INTRACORNEAL
     Route: 021
     Dates: start: 20080922, end: 20080925

REACTIONS (7)
  - DRUG HYPERSENSITIVITY [None]
  - DYSPNOEA [None]
  - LACRIMATION INCREASED [None]
  - PRODUCT CONTAMINATION [None]
  - PRODUCT QUALITY ISSUE [None]
  - SOMNOLENCE [None]
  - THERAPEUTIC RESPONSE UNEXPECTED [None]
